FAERS Safety Report 8941867 (Version 2)
Quarter: 2012Q4

REPORT INFORMATION
  Report Type: 
  Country: US (occurrence: US)
  Receive Date: 20121203
  Receipt Date: 20121211
  Transmission Date: 20130627
  Serious: Yes (Other)
  Sender: FDA-Public Use
  Company Number: US-ABBOTT-12P-163-1014761-00

PATIENT
  Sex: Male
  Weight: 90.8 kg

DRUGS (8)
  1. ANDROGEL [Suspect]
     Indication: BLOOD TESTOSTERONE DECREASED
     Dosage: 3 pumps
     Route: 061
     Dates: start: 201201, end: 201202
  2. CRESTOR [Concomitant]
     Indication: BLOOD CHOLESTEROL INCREASED
  3. AMITIZA [Concomitant]
     Indication: CONSTIPATION
  4. CO Q 10 [Concomitant]
     Indication: SUPPLEMENTATION THERAPY
  5. MATURE MULTIVITAMINS [Concomitant]
     Indication: SUPPLEMENTATION THERAPY
  6. STOOL SOFTENER [Concomitant]
     Indication: SUPPLEMENTATION THERAPY
  7. ASPIRIN [Concomitant]
     Indication: PRODUCT USED FOR UNKNOWN INDICATION
     Dates: end: 201202
  8. CITRUCEL [Concomitant]
     Indication: SUPPLEMENTATION THERAPY

REACTIONS (9)
  - Optic ischaemic neuropathy [Not Recovered/Not Resolved]
  - Retinal vein occlusion [Not Recovered/Not Resolved]
  - Visual field defect [Not Recovered/Not Resolved]
  - Blindness unilateral [Not Recovered/Not Resolved]
  - Visual impairment [Not Recovered/Not Resolved]
  - Visual impairment [Not Recovered/Not Resolved]
  - Haematocrit increased [Unknown]
  - Blood viscosity increased [Unknown]
  - Hypertension [Unknown]
